FAERS Safety Report 11707054 (Version 1)
Quarter: 2015Q4

REPORT INFORMATION
  Report Type: Spontaneous
  Country: US (occurrence: US)
  Receive Date: 20151104
  Receipt Date: 20151104
  Transmission Date: 20160304
  Serious: Yes (Other)
  Sender: FDA-Public Use
  Company Number: US-ELI_LILLY_AND_COMPANY-US201102000183

PATIENT
  Age: 68 Year
  Sex: Female

DRUGS (1)
  1. FORTEO [Suspect]
     Active Substance: TERIPARATIDE
     Indication: OSTEOPOROSIS
     Dosage: 20 UG, DAILY (1/D)
     Dates: start: 20110121

REACTIONS (11)
  - Fall [Unknown]
  - Disease prodromal stage [Unknown]
  - Gastrointestinal disorder [Unknown]
  - Frustration [Unknown]
  - Drug dose omission [Unknown]
  - Off label use [Unknown]
  - Pulse abnormal [Recovered/Resolved]
  - Presyncope [Unknown]
  - Dizziness [Unknown]
  - Syncope [Recovered/Resolved]
  - Irritability [Unknown]

NARRATIVE: CASE EVENT DATE: 20110121
